FAERS Safety Report 5758151-5 (Version None)
Quarter: 2008Q2

REPORT INFORMATION
  Report Type: 
  Country: None (occurrence: None)
  Receive Date: 20080602
  Receipt Date: 20080602
  Transmission Date: 20081010
  Serious: Yes (Death, Hospitalization)
  Sender: FDA-Public Use
  Company Number: None

PATIENT
  Sex: Male
  Weight: 55.8 kg

DRUGS (2)
  1. CYTARABINE [Suspect]
     Dosage: 40000MG
  2. L-ASPARAGINASE [Suspect]
     Dosage: 20000 UNIT

REACTIONS (13)
  - ACTIVATED PARTIAL THROMBOPLASTIN TIME PROLONGED [None]
  - CARDIO-RESPIRATORY ARREST [None]
  - CLOSTRIDIUM BACTERAEMIA [None]
  - CONVULSION [None]
  - DIARRHOEA [None]
  - HAEMOGLOBIN DECREASED [None]
  - INTERNATIONAL NORMALISED RATIO INCREASED [None]
  - NEUTROPENIA [None]
  - PROTHROMBIN TIME PROLONGED [None]
  - SEPSIS [None]
  - SUBARACHNOID HAEMORRHAGE [None]
  - THROMBOCYTOPENIA [None]
  - UNRESPONSIVE TO STIMULI [None]
